FAERS Safety Report 5208321-X (Version None)
Quarter: 2007Q1

REPORT INFORMATION
  Report Type: 
  Country: None (occurrence: None)
  Receive Date: 20070110
  Receipt Date: 20070110
  Transmission Date: 20070707
  Serious: Yes (Life-Threatening, Other)
  Sender: FDA-Public Use
  Company Number: None

PATIENT
  Sex: Female
  Weight: 59 kg

DRUGS (1)
  1. MOVATE CREAM CLOBETASOL PROPIONATE 0.05% ESAPHARM MILAN ITALY [Suspect]
     Indication: SKIN DISORDER
     Dosage: 3 TIMES PR DAY
     Dates: start: 20060106, end: 20060109

REACTIONS (6)
  - ASTHENIA [None]
  - CHEST PAIN [None]
  - DIZZINESS [None]
  - DYSPNOEA [None]
  - HEADACHE [None]
  - MALAISE [None]
